FAERS Safety Report 25749941 (Version 1)
Quarter: 2025Q3

REPORT INFORMATION
  Report Type: Spontaneous
  Country: JP (occurrence: JP)
  Receive Date: 20250902
  Receipt Date: 20250902
  Transmission Date: 20251020
  Serious: Yes (Hospitalization)
  Sender: AMGEN
  Company Number: JP-AMGEN-JPNSP2025170495

PATIENT
  Age: 5 Decade
  Sex: Female

DRUGS (7)
  1. BEVACIZUMAB [Suspect]
     Active Substance: BEVACIZUMAB
     Indication: Invasive ductal breast carcinoma
     Route: 065
  2. CYCLOPHOSPHAMIDE\EPIRUBICIN HYDROCHLORIDE\FLUOROURACIL [Concomitant]
     Active Substance: CYCLOPHOSPHAMIDE\EPIRUBICIN HYDROCHLORIDE\FLUOROURACIL
     Indication: Invasive ductal breast carcinoma
  3. GONADORELIN DIACETATE TETRAHYDRATE [Concomitant]
     Active Substance: GONADORELIN DIACETATE TETRAHYDRATE
     Indication: Invasive ductal breast carcinoma
  4. TAMOXIFEN [Concomitant]
     Active Substance: TAMOXIFEN
     Indication: Invasive ductal breast carcinoma
  5. ZOLEDRONIC ACID [Concomitant]
     Active Substance: ZOLEDRONIC ACID
     Indication: Invasive ductal breast carcinoma
  6. LETROZOLE [Concomitant]
     Active Substance: LETROZOLE
     Indication: Invasive ductal breast carcinoma
  7. PACLITAXEL [Concomitant]
     Active Substance: PACLITAXEL
     Indication: Invasive ductal breast carcinoma
     Route: 065

REACTIONS (9)
  - Anal fissure haemorrhage [Unknown]
  - Mental fatigue [Unknown]
  - Fatigue [Unknown]
  - Metastases to liver [Recovering/Resolving]
  - Invasive ductal breast carcinoma [Recovering/Resolving]
  - Neutrophil count decreased [Not Recovered/Not Resolved]
  - Pyrexia [Unknown]
  - Asthenia [Unknown]
  - Malaise [Unknown]
